FAERS Safety Report 14412169 (Version 1)
Quarter: 2018Q1

REPORT INFORMATION
  Report Type: Spontaneous
  Country: FR (occurrence: FR)
  Receive Date: 20180119
  Receipt Date: 20180119
  Transmission Date: 20180509
  Serious: Yes (Other)
  Sender: FDA-Public Use
  Company Number: PHHY2018FR006687

PATIENT
  Age: 52 Year
  Sex: Male

DRUGS (1)
  1. ETANERCEPT [Suspect]
     Active Substance: ETANERCEPT
     Indication: AXIAL SPONDYLOARTHRITIS
     Route: 065

REACTIONS (3)
  - Jessner^s lymphocytic infiltration [Recovered/Resolved]
  - Skin lesion [Recovered/Resolved]
  - Papule [Recovered/Resolved]
